FAERS Safety Report 21387300 (Version 1)
Quarter: 2022Q3

REPORT INFORMATION
  Report Type: Spontaneous
  Country: US (occurrence: US)
  Receive Date: 20220928
  Receipt Date: 20220928
  Transmission Date: 20221027
  Serious: No
  Sender: FDA-Public Use
  Company Number: US-INSUD PHARMA-2209US03893

PATIENT

DRUGS (2)
  1. SLYND [Suspect]
     Active Substance: DROSPIRENONE
     Indication: Product used for unknown indication
     Dosage: UNK
     Route: 048
  2. SLYND [Suspect]
     Active Substance: DROSPIRENONE
     Dosage: DOSE DOUBLED
     Route: 048

REACTIONS (2)
  - Intermenstrual bleeding [Unknown]
  - Off label use [Unknown]
